FAERS Safety Report 18831247 (Version 2)
Quarter: 2021Q4

REPORT INFORMATION
  Report Type: Spontaneous
  Country: US (occurrence: US)
  Receive Date: 20210203
  Receipt Date: 20211027
  Transmission Date: 20220303
  Serious: Yes (Hospitalization, Other)
  Sender: FDA-Public Use
  Company Number: US-GRANULES-US-2021GRALIT00083

PATIENT
  Age: 29 Year
  Sex: Male

DRUGS (1)
  1. NAPROXEN [Suspect]
     Active Substance: NAPROXEN
     Indication: Product used for unknown indication
     Dosage: FOR AT LEAST 2 DAYS
     Route: 065

REACTIONS (4)
  - Spinal epidural haematoma [Recovered/Resolved]
  - Intentional overdose [Unknown]
  - Radiculopathy [Unknown]
  - Back pain [Unknown]
